FAERS Safety Report 20573641 (Version 1)
Quarter: 2022Q1

REPORT INFORMATION
  Report Type: Spontaneous
  Country: FR (occurrence: FR)
  Receive Date: 20220309
  Receipt Date: 20220309
  Transmission Date: 20220423
  Serious: Yes (Hospitalization)
  Sender: FDA-Public Use
  Company Number: None

PATIENT
  Age: 50 Year
  Sex: Female

DRUGS (3)
  1. BUPRENORPHINE [Suspect]
     Active Substance: BUPRENORPHINE
  2. XANAX [Suspect]
     Active Substance: ALPRAZOLAM
     Dosage: 4CP/J
     Route: 048
  3. ACETAMINOPHEN\CODEINE PHOSPHATE [Suspect]
     Active Substance: ACETAMINOPHEN\CODEINE PHOSPHATE
     Dosage: 12CP/J
     Route: 048

REACTIONS (3)
  - Myoclonus [Recovering/Resolving]
  - Drug dependence [Recovering/Resolving]
  - Drug dependence [Recovering/Resolving]

NARRATIVE: CASE EVENT DATE: 20220124
